FAERS Safety Report 13119596 (Version 1)
Quarter: 2017Q1

REPORT INFORMATION
  Report Type: Spontaneous
  Country: IT (occurrence: IT)
  Receive Date: 20170116
  Receipt Date: 20170116
  Transmission Date: 20170428
  Serious: Yes (Other)
  Sender: FDA-Public Use
  Company Number: IT-ROCHE-1880374

PATIENT
  Age: 28 Year
  Sex: Male

DRUGS (3)
  1. ABILIFY [Concomitant]
     Active Substance: ARIPIPRAZOLE
  2. HALDOL [Concomitant]
     Active Substance: HALOPERIDOL
  3. RIVOTRIL [Suspect]
     Active Substance: CLONAZEPAM
     Indication: ANXIETY
     Route: 048
     Dates: start: 20150704, end: 20150704

REACTIONS (2)
  - Sopor [Recovered/Resolved]
  - Drug abuse [Unknown]

NARRATIVE: CASE EVENT DATE: 20150704
